FAERS Safety Report 7338177-0 (Version None)
Quarter: 2011Q1

REPORT INFORMATION
  Report Type: 
  Country: None (occurrence: None)
  Receive Date: 20110224
  Receipt Date: 20110211
  Transmission Date: 20110831
  Serious: Yes (Death, Hospitalization, Other)
  Sender: FDA-Public Use
  Company Number: CL-290-2011

PATIENT
  Age: 17 Year
  Sex: Female
  Weight: 60 kg

DRUGS (4)
  1. MYCOPHENOLATE MOFETIL [Suspect]
     Indication: IMMUNOSUPPRESSANT DRUG THERAPY
     Dosage: 1800MG-4500MG/DAY IV
     Route: 042
  2. CASPOFUNGIN [Suspect]
     Indication: PYREXIA
     Dosage: 70MG DAILY
  3. TRIMETHOPRIM + SULFAMETHOXAZOLE [Suspect]
     Indication: PYREXIA
     Dosage: 240-1200MG EVERY 48TH
  4. CIPROFLOXACIN [Suspect]
     Indication: PYREXIA
     Dosage: 800MG-1200MG/DAY IV
     Route: 042

REACTIONS (8)
  - DIARRHOEA [None]
  - GASTROINTESTINAL DISORDER [None]
  - ACUTE GRAFT VERSUS HOST DISEASE IN SKIN [None]
  - ACUTE GRAFT VERSUS HOST DISEASE IN INTESTINE [None]
  - DRUG INTERACTION [None]
  - IMMUNOSUPPRESSANT DRUG LEVEL DECREASED [None]
  - THROMBOTIC MICROANGIOPATHY [None]
  - PYREXIA [None]
